FAERS Safety Report 8282676-4 (Version None)
Quarter: 2012Q2

REPORT INFORMATION
  Report Type: 
  Country: None (occurrence: None)
  Receive Date: 20120413
  Receipt Date: 20120405
  Transmission Date: 20120825
  Serious: Yes (Hospitalization)
  Sender: FDA-Public Use
  Company Number: FR-ROCHE-1052433

PATIENT
  Sex: Female
  Weight: 75 kg

DRUGS (4)
  1. AVASTIN [Suspect]
     Dosage: 5 MG/KG WHICH CORRESPOND TO 360 MG
     Route: 042
     Dates: start: 20120221, end: 20120221
  2. IRINOTECAN HCL [Concomitant]
     Indication: COLON CANCER
     Route: 042
     Dates: start: 20120124, end: 20120221
  3. AVASTIN [Suspect]
     Indication: COLON CANCER
     Dosage: 10 MG/KG WHICH CORRESPOND TO 720 MG
     Route: 042
     Dates: start: 20120207, end: 20120221
  4. FLUOROURACIL [Concomitant]
     Indication: COLON CANCER
     Route: 042
     Dates: start: 20120124, end: 20120221

REACTIONS (2)
  - PHLEBITIS [None]
  - PULMONARY EMBOLISM [None]
